FAERS Safety Report 7399014-1 (Version None)
Quarter: 2011Q1

REPORT INFORMATION
  Report Type: 
  Country: None (occurrence: None)
  Receive Date: 20110328
  Receipt Date: 20110310
  Transmission Date: 20110831
  Serious: Yes (Other)
  Sender: FDA-Public Use
  Company Number: 018748

PATIENT
  Sex: Male
  Weight: 62.6 kg

DRUGS (13)
  1. TRAMADOL [Concomitant]
  2. CERTOLIZUMAB PEGOL [Suspect]
     Indication: RHEUMATOID ARTHRITIS
     Dosage: SEE IMAGE
     Route: 058
     Dates: start: 20090421, end: 20091201
  3. CERTOLIZUMAB PEGOL [Suspect]
     Indication: RHEUMATOID ARTHRITIS
     Dosage: SEE IMAGE
     Route: 058
     Dates: start: 20090112, end: 20090209
  4. CERTOLIZUMAB PEGOL [Suspect]
     Indication: RHEUMATOID ARTHRITIS
     Dosage: SEE IMAGE
     Route: 058
     Dates: start: 20090223, end: 20090407
  5. KLONOPIN [Concomitant]
  6. PREDNISONE [Concomitant]
  7. METHOTREXATE [Concomitant]
  8. DARVOCET [Concomitant]
  9. MELOXICAM [Concomitant]
  10. FOLIC ACID [Concomitant]
  11. CALCIUM CARBONATE [Concomitant]
  12. MAGNESIUM HYDROXIDE [Concomitant]
  13. BENADRYL /0000402/ [Concomitant]

REACTIONS (3)
  - UNRESPONSIVE TO STIMULI [None]
  - BURSITIS [None]
  - GRAND MAL CONVULSION [None]
